FAERS Safety Report 14092259 (Version 1)
Quarter: 2017Q4

REPORT INFORMATION
  Report Type: Spontaneous
  Country: US (occurrence: US)
  Receive Date: 20171014
  Receipt Date: 20171014
  Transmission Date: 20180321
  Serious: No
  Sender: FDA-Public Use
  Company Number: None

PATIENT
  Sex: Male
  Weight: 67.5 kg

DRUGS (9)
  1. ASCORBIC ACID. [Concomitant]
     Active Substance: ASCORBIC ACID
  2. SYNTHROID [Concomitant]
     Active Substance: LEVOTHYROXINE SODIUM
  3. METAPROPOLOL [Concomitant]
  4. BENICAR [Concomitant]
     Active Substance: OLMESARTAN MEDOXOMIL
  5. CURCUMIN [Concomitant]
     Active Substance: CURCUMIN
  6. MIXED VITAMINS [Concomitant]
  7. COQ10 [Concomitant]
     Active Substance: UBIDECARENONE
  8. VITAMIN B COMPLEX [Concomitant]
     Active Substance: CYANOCOBALAMIN\DEXPANTHENOL\NIACINAMIDE\PYRIDOXINE HYDROCHLORIDE\RIBOFLAVIN 5^-PHOSPHATE SODIUM\THIAMINE HYDROCHLORIDE\VITAMIN B COMPLEX
  9. NEILMED SINUS WASH [Suspect]
     Active Substance: SODIUM BICARBONATE\SODIUM CHLORIDE
     Indication: SINUSITIS
     Dosage: OTHER ROUTE:SQUIRT IN NOSTRIL?
     Route: 045
     Dates: start: 20150515, end: 20171009

REACTIONS (3)
  - Product contamination chemical [None]
  - Instillation site reaction [None]
  - Instillation site pain [None]

NARRATIVE: CASE EVENT DATE: 20171009
